FAERS Safety Report 14098638 (Version 1)
Quarter: 2017Q4

REPORT INFORMATION
  Report Type: Spontaneous
  Country: PT (occurrence: PT)
  Receive Date: 20171017
  Receipt Date: 20171017
  Transmission Date: 20180321
  Serious: Yes (Hospitalization, Other)
  Sender: FDA-Public Use
  Company Number: PT-JNJFOC-20171009483

PATIENT
  Age: 27 Year
  Sex: Male

DRUGS (1)
  1. METHYLPHENIDATE. [Suspect]
     Active Substance: METHYLPHENIDATE
     Indication: DRUG USE DISORDER
     Route: 065
     Dates: start: 201301

REACTIONS (9)
  - Visual impairment [Recovered/Resolved]
  - Arrhythmia [Recovered/Resolved]
  - Drug abuse [Recovered/Resolved]
  - Hypertension [Recovered/Resolved]
  - Insomnia [Recovered/Resolved]
  - Fatigue [Recovered/Resolved]
  - Palpitations [Recovered/Resolved]
  - Abnormal behaviour [Recovered/Resolved]
  - Drug diversion [Recovered/Resolved]
